FAERS Safety Report 18275136 (Version 1)
Quarter: 2020Q3

REPORT INFORMATION
  Report Type: Spontaneous
  Country: US (occurrence: US)
  Receive Date: 20200917
  Receipt Date: 20200917
  Transmission Date: 20201103
  Serious: Yes (Other)
  Sender: FDA-Public Use
  Company Number: US-RECORDATI RARE DISEASES-2090828

PATIENT
  Age: 72 Year
  Sex: Female

DRUGS (1)
  1. SIGNIFOR LAR [Suspect]
     Active Substance: PASIREOTIDE PAMOATE
     Indication: ACROMEGALY

REACTIONS (8)
  - Joint swelling [Unknown]
  - Blood glucose increased [Recovering/Resolving]
  - Cardiac failure congestive [Unknown]
  - Arthralgia [Unknown]
  - Myalgia [Unknown]
  - Blood pressure increased [Recovering/Resolving]
  - Heart rate decreased [Unknown]
  - Pain [Unknown]

NARRATIVE: CASE EVENT DATE: 2020
